FAERS Safety Report 24713165 (Version 4)
Quarter: 2025Q3

REPORT INFORMATION
  Report Type: Spontaneous
  Country: JP (occurrence: JP)
  Receive Date: 20241209
  Receipt Date: 20250809
  Transmission Date: 20251020
  Serious: Yes (Other)
  Sender: ALEXION PHARMACEUTICALS
  Company Number: JP-ASTRAZENECA-240138670_013020_P_1

PATIENT
  Age: 95 Year
  Sex: Male

DRUGS (1)
  1. OSIMERTINIB [Suspect]
     Active Substance: OSIMERTINIB
     Dates: start: 20241120

REACTIONS (5)
  - Malignant pleural effusion [Unknown]
  - Cough [Unknown]
  - Haemoptysis [Unknown]
  - Musculoskeletal chest pain [Unknown]
  - Fatigue [Unknown]
